FAERS Safety Report 22042213 (Version 2)
Quarter: 2023Q2

REPORT INFORMATION
  Report Type: Spontaneous
  Country: JP (occurrence: JP)
  Receive Date: 20230227
  Receipt Date: 20230605
  Transmission Date: 20230722
  Serious: Yes (Hospitalization)
  Sender: FDA-Public Use
  Company Number: JP-ABBVIE-4319930

PATIENT
  Age: 13 Year
  Sex: Male

DRUGS (1)
  1. RINVOQ [Suspect]
     Active Substance: UPADACITINIB
     Indication: Dermatitis atopic
     Dosage: FORM STRENGTH 15 MILLIGRAM
     Route: 048
     Dates: end: 2022

REACTIONS (3)
  - Face oedema [Unknown]
  - Coronavirus infection [Unknown]
  - Eczema herpeticum [Recovered/Resolved]
